FAERS Safety Report 7602355-3 (Version None)
Quarter: 2011Q3

REPORT INFORMATION
  Report Type: 
  Country: None (occurrence: None)
  Receive Date: 20110712
  Receipt Date: 20110706
  Transmission Date: 20111222
  Serious: Yes (Hospitalization)
  Sender: FDA-Public Use
  Company Number: FR-BRISTOL-MYERS SQUIBB COMPANY-15884448

PATIENT
  Age: 67 Year
  Sex: Female

DRUGS (11)
  1. ATORVASTATIN CALCIUM [Concomitant]
  2. HYDREA [Suspect]
     Indication: MYELOFIBROSIS
     Route: 048
     Dates: start: 20090601, end: 20110406
  3. PREDNISONE [Concomitant]
     Dates: start: 20090601
  4. CLONAZEPAM [Concomitant]
     Dates: start: 20110201
  5. AMLODIPINE [Concomitant]
  6. HYDREA [Suspect]
     Indication: SPLENOMEGALY
     Route: 048
     Dates: start: 20090601, end: 20110406
  7. IMOVANE [Concomitant]
     Dates: start: 20110201
  8. PURINETHOL [Suspect]
     Route: 048
     Dates: start: 20110101
  9. MORPHINE SULFATE [Concomitant]
  10. ACETAMINOPHEN [Concomitant]
  11. MORPHINE SULFATE [Concomitant]

REACTIONS (1)
  - INTERSTITIAL LUNG DISEASE [None]
